FAERS Safety Report 5711764-9 (Version None)
Quarter: 2008Q2

REPORT INFORMATION
  Report Type: 
  Country: None (occurrence: None)
  Receive Date: 20080421
  Receipt Date: 20080409
  Transmission Date: 20081010
  Serious: Yes (Hospitalization, Other)
  Sender: FDA-Public Use
  Company Number: AU-PFIZER INC-2008031982

PATIENT
  Age: 65 Year
  Sex: Female

DRUGS (5)
  1. ALDACTONE [Suspect]
     Route: 065
  2. ALDACTONE [Suspect]
     Dosage: DAILY DOSE:150MG
  3. ALDACTONE [Suspect]
  4. VACCINES [Suspect]
     Route: 065
  5. CELEBREX [Concomitant]

REACTIONS (4)
  - BALANCE DISORDER [None]
  - GAIT DISTURBANCE [None]
  - NEUROPATHY PERIPHERAL [None]
  - VACCINATION COMPLICATION [None]
